FAERS Safety Report 6841420-5 (Version None)
Quarter: 2010Q3

REPORT INFORMATION
  Report Type: 
  Country: None (occurrence: None)
  Receive Date: 20100714
  Receipt Date: 20070706
  Transmission Date: 20110219
  Serious: No
  Sender: FDA-Public Use
  Company Number: US-PFIZER INC-2007057688

PATIENT
  Sex: Male
  Weight: 104.3 kg

DRUGS (2)
  1. CHANTIX [Suspect]
     Indication: SMOKING CESSATION THERAPY
     Dates: start: 20070616
  2. DRUG, UNSPECIFIED [Concomitant]

REACTIONS (2)
  - FLATULENCE [None]
  - POLLAKIURIA [None]
